FAERS Safety Report 14557997 (Version 1)
Quarter: 2018Q1

REPORT INFORMATION
  Report Type: Spontaneous
  Country: IL (occurrence: IL)
  Receive Date: 20180221
  Receipt Date: 20180221
  Transmission Date: 20180509
  Serious: Yes (Other)
  Sender: FDA-Public Use
  Company Number: IL-PFIZER INC-2018068663

PATIENT
  Sex: Female

DRUGS (2)
  1. CYTOTEC [Suspect]
     Active Substance: MISOPROSTOL
     Indication: ABORTION INDUCED
     Dosage: UNK
     Dates: start: 20180112, end: 20180112
  2. MIFEGYNE [Suspect]
     Active Substance: MIFEPRISTONE
     Indication: ABORTION INDUCED
     Dosage: 600 MG, UNK (TOTAL)
     Dates: start: 20180111, end: 20180111

REACTIONS (3)
  - Metrorrhagia [Not Recovered/Not Resolved]
  - Uterine spasm [Unknown]
  - Palpitations [Unknown]

NARRATIVE: CASE EVENT DATE: 20180111
